FAERS Safety Report 15503182 (Version 1)
Quarter: 2018Q4

REPORT INFORMATION
  Report Type: Spontaneous
  Country: US (occurrence: US)
  Receive Date: 20181008
  Receipt Date: 20181008
  Transmission Date: 20190205
  Serious: Yes (Other)
  Sender: FDA-Public Use
  Company Number: None

PATIENT
  Age: 12 Year
  Sex: Male
  Weight: 75.6 kg

DRUGS (5)
  1. EQUATE CLEAR LAX [Suspect]
     Active Substance: POLYETHYLENE GLYCOL 3350
     Indication: CONSTIPATION
     Dosage: QUANTITY:1 CAPFUL;?
     Route: 048
     Dates: start: 20180920, end: 20181005
  2. MELATONIN [Concomitant]
     Active Substance: MELATONIN
  3. MAGNESIUM [Concomitant]
     Active Substance: MAGNESIUM
  4. VYVANSE [Concomitant]
     Active Substance: LISDEXAMFETAMINE DIMESYLATE
  5. PRILOSEC [Concomitant]
     Active Substance: OMEPRAZOLE MAGNESIUM

REACTIONS (8)
  - Anger [None]
  - Crying [None]
  - Psychotic disorder [None]
  - Headache [None]
  - Vomiting [None]
  - Dizziness [None]
  - Hallucination [None]
  - Gait inability [None]

NARRATIVE: CASE EVENT DATE: 20181004
